FAERS Safety Report 20917241 (Version 1)
Quarter: 2022Q2

REPORT INFORMATION
  Report Type: Spontaneous
  Country: US (occurrence: US)
  Receive Date: 20220606
  Receipt Date: 20220606
  Transmission Date: 20220721
  Serious: Yes (Other)
  Sender: FDA-Public Use
  Company Number: US-BoehringerIngelheim-2022-BI-173543

PATIENT
  Age: 75 Year
  Sex: Female

DRUGS (4)
  1. DABIGATRAN [Suspect]
     Active Substance: DABIGATRAN
     Indication: Atrial fibrillation
  2. DABIGATRAN [Suspect]
     Active Substance: DABIGATRAN
     Indication: Device related thrombosis
  3. WARFARIN [Suspect]
     Active Substance: WARFARIN
     Indication: Atrial fibrillation
  4. WARFARIN [Suspect]
     Active Substance: WARFARIN
     Indication: Device related thrombosis

REACTIONS (2)
  - Gastrointestinal haemorrhage [Unknown]
  - Device related thrombosis [Unknown]
